FAERS Safety Report 7428783-7 (Version None)
Quarter: 2011Q2

REPORT INFORMATION
  Report Type: 
  Country: None (occurrence: None)
  Receive Date: 20110413
  Receipt Date: 20110401
  Transmission Date: 20111010
  Serious: Yes (Hospitalization)
  Sender: FDA-Public Use
  Company Number: 2011PV000018

PATIENT
  Age: 16 Year
  Sex: Female

DRUGS (19)
  1. VORICONAZOLE [Suspect]
     Indication: ASPERGILLOSIS
     Dosage: 360 MG; BID; IV
     Route: 042
     Dates: start: 20110121, end: 20110125
  2. POLARAMINE [Concomitant]
  3. ASPARAGINASE [Suspect]
     Indication: ACUTE LYMPHOCYTIC LEUKAEMIA
     Dosage: 1600 IU; QD; IM
     Route: 030
     Dates: start: 20110213, end: 20110213
  4. FLUCONAZOLE [Concomitant]
  5. ZOFRAN [Concomitant]
  6. LEUCOVORIN CALCIUM [Concomitant]
  7. SEPTRA [Concomitant]
  8. DEPOCYT [Suspect]
     Indication: ACUTE LYMPHOCYTIC LEUKAEMIA
     Dosage: 35 MG; 1X; INTH
     Route: 037
     Dates: start: 20110216, end: 20110216
  9. VINCRISTINE [Suspect]
     Indication: ACUTE LYMPHOCYTIC LEUKAEMIA
     Dosage: 2 MG; QD; IV
     Route: 042
     Dates: start: 20110208, end: 20110208
  10. DEXAMETHASONE [Suspect]
     Indication: ACUTE LYMPHOCYTIC LEUKAEMIA
     Dosage: 11 MG; TID; PO
     Route: 048
     Dates: start: 20110208, end: 20110220
  11. PYRIDOXINE [Concomitant]
  12. EMLA [Concomitant]
  13. OMEPRAZOLE [Concomitant]
  14. ACETAMINOPHEN [Concomitant]
  15. CYTARABINE [Suspect]
     Indication: ACUTE LYMPHOCYTIC LEUKAEMIA
     Dosage: 1660 MG
     Dates: start: 20110212, end: 20110213
  16. MAXIDEX [Suspect]
     Indication: ACUTE LYMPHOCYTIC LEUKAEMIA
     Dosage: O.2 MG; TID; OPH
     Route: 047
  17. SECURIL [Concomitant]
  18. METHOTREXATE [Concomitant]
  19. TORIOL [Concomitant]

REACTIONS (1)
  - PANCYTOPENIA [None]
